FAERS Safety Report 22635028 (Version 1)
Quarter: 2023Q2

REPORT INFORMATION
  Report Type: Spontaneous
  Country: US (occurrence: US)
  Receive Date: 20230623
  Receipt Date: 20230623
  Transmission Date: 20230722
  Serious: No
  Sender: FDA-Public Use
  Company Number: US-SA-SAC20230621000306

PATIENT
  Sex: Female

DRUGS (1)
  1. DUPIXENT [Suspect]
     Active Substance: DUPILUMAB
     Dosage: DOSE- 300 MG FREQUENCY: OTHER
     Route: 058

REACTIONS (5)
  - Skin infection [Unknown]
  - Eye pruritus [Unknown]
  - Dry eye [Unknown]
  - Injection site pain [Unknown]
  - Product preparation error [Unknown]
